FAERS Safety Report 21406180 (Version 1)
Quarter: 2022Q4

REPORT INFORMATION
  Report Type: Spontaneous
  Country: US (occurrence: None)
  Receive Date: 20221003
  Receipt Date: 20221003
  Transmission Date: 20230113
  Serious: Yes (Death)
  Sender: FDA-Public Use
  Company Number: None

PATIENT
  Age: 82 Year
  Sex: Male
  Weight: 85.73 kg

DRUGS (17)
  1. ABIRATERONE ACETATE [Suspect]
     Active Substance: ABIRATERONE ACETATE
     Indication: Prostate cancer
     Dosage: FREQUENCY : DAILY;?
     Route: 048
     Dates: start: 202209, end: 20221002
  2. AMLODIPINE [Concomitant]
     Active Substance: AMLODIPINE BESYLATE
  3. ASPIRIN [Concomitant]
     Active Substance: ASPIRIN
  4. ATORVASTATIN [Concomitant]
     Active Substance: ATORVASTATIN
  5. COLACE [Concomitant]
     Active Substance: DOCUSATE SODIUM
  6. DOCUSATE [Concomitant]
     Active Substance: DOCUSATE
  7. ELIGARD [Concomitant]
     Active Substance: LEUPROLIDE ACETATE
  8. FIRMAGON [Concomitant]
     Active Substance: DEGARELIX ACETATE
  9. GLIPIZIDE [Concomitant]
     Active Substance: GLIPIZIDE
  10. LOSARTAN [Concomitant]
     Active Substance: LOSARTAN
  11. METFORMIN [Concomitant]
     Active Substance: METFORMIN HYDROCHLORIDE
  12. MIRALAX [Concomitant]
     Active Substance: POLYETHYLENE GLYCOL 3350
  13. OXYCODONE [Concomitant]
     Active Substance: OXYCODONE
  14. PREDNISONE [Concomitant]
     Active Substance: PREDNISONE
  15. TOUJEO [Concomitant]
     Active Substance: INSULIN GLARGINE
  16. TYLENOL [Concomitant]
     Active Substance: ACETAMINOPHEN
  17. ZOMETA [Concomitant]
     Active Substance: ZOLEDRONIC ACID

REACTIONS (1)
  - Death [None]
